FAERS Safety Report 12289201 (Version 2)
Quarter: 2016Q3

REPORT INFORMATION
  Report Type: Spontaneous
  Country: US (occurrence: US)
  Receive Date: 20160421
  Receipt Date: 20160810
  Transmission Date: 20161109
  Serious: Yes (Other)
  Sender: FDA-Public Use
  Company Number: US-GLAXOSMITHKLINE-US2016050743

PATIENT
  Sex: Female

DRUGS (1)
  1. KERI UNKNOWN CUTANEOUS EMULSION [Suspect]
     Active Substance: LANOLIN\MINERAL OIL
     Indication: DRY SKIN
     Dosage: UNK
     Route: 061

REACTIONS (2)
  - Product quality issue [Unknown]
  - Neoplasm malignant [Recovered/Resolved]
